FAERS Safety Report 7033221-2 (Version None)
Quarter: 2010Q4

REPORT INFORMATION
  Report Type: 
  Country: None (occurrence: None)
  Receive Date: 20101005
  Receipt Date: 20100923
  Transmission Date: 20110411
  Serious: Yes (Other)
  Sender: FDA-Public Use
  Company Number: 1000015683

PATIENT
  Age: 30 Year
  Sex: Female
  Weight: 47.9 kg

DRUGS (2)
  1. ESCITALOPRAM [Suspect]
     Indication: GENERALISED ANXIETY DISORDER
     Dosage: 10 MG (10 MG,1 IN 1 D),ORAL
     Route: 048
  2. CORTISONE(CORTISONE) (CORTISONE) [Concomitant]

REACTIONS (3)
  - COLITIS ULCERATIVE [None]
  - DRUG EXPOSURE DURING PREGNANCY [None]
  - PREGNANCY [None]
